FAERS Safety Report 7991215-4 (Version None)
Quarter: 2011Q4

REPORT INFORMATION
  Report Type: 
  Country: None (occurrence: None)
  Receive Date: 20111219
  Receipt Date: 20111212
  Transmission Date: 20120403
  Serious: Yes (Other)
  Sender: FDA-Public Use
  Company Number: BR-GLAXOSMITHKLINE-A0953801A

PATIENT
  Sex: Female
  Weight: 50 kg

DRUGS (2)
  1. LAMICTAL [Suspect]
     Indication: NERVOUS SYSTEM DISORDER
     Dosage: 100MGD PER DAY
     Route: 065
     Dates: start: 20110811, end: 20111026
  2. NONE [Concomitant]

REACTIONS (4)
  - TRANSAMINASES INCREASED [None]
  - JAUNDICE [None]
  - ABDOMINAL PAIN [None]
  - HEPATITIS [None]
